FAERS Safety Report 4924561-9 (Version None)
Quarter: 2006Q1

REPORT INFORMATION
  Report Type: 
  Country: None (occurrence: None)
  Receive Date: 20060222
  Receipt Date: 20060131
  Transmission Date: 20060701
  Serious: Yes (Other)
  Sender: FDA-Public Use
  Company Number: 2006016696

PATIENT
  Age: 65 Year
  Sex: Female

DRUGS (3)
  1. AMLODIPINE [Suspect]
     Indication: HYPERTENSION
     Dosage: 5 MG (5 MG, SINGLE:  EVERY DAY), ORAL
     Route: 048
     Dates: start: 20000101, end: 20050601
  2. ALENDRONATE SODIUM [Suspect]
     Indication: HYPERTENSION
     Dosage: (70MG WEEKLY), ORAL
     Route: 048
     Dates: end: 20050601
  3. CHLORTHALIDONE [Concomitant]

REACTIONS (4)
  - GENERALISED OEDEMA [None]
  - MUSCLE ATROPHY [None]
  - OSTEOPOROSIS [None]
  - PAIN [None]
